FAERS Safety Report 13633251 (Version 1)
Quarter: 2017Q2

REPORT INFORMATION
  Report Type: Spontaneous
  Country: US (occurrence: US)
  Receive Date: 20170531
  Receipt Date: 20170531
  Transmission Date: 20170830
  Serious: No
  Sender: FDA-Public Use
  Company Number: US-ASTELLAS-1521549

PATIENT
  Sex: Female
  Weight: 53.57 kg

DRUGS (14)
  1. PROCHLORPERAZINE. [Concomitant]
     Active Substance: PROCHLORPERAZINE
  2. CITALOPRAM [Concomitant]
     Active Substance: CITALOPRAM HYDROBROMIDE
  3. OXCARBAZEPINE. [Concomitant]
     Active Substance: OXCARBAZEPINE
  4. TARCEVA [Suspect]
     Active Substance: ERLOTINIB HYDROCHLORIDE
     Indication: LUNG NEOPLASM MALIGNANT
     Route: 048
  5. DIVALPROEX [Concomitant]
     Active Substance: DIVALPROEX SODIUM
  6. HYDROCORTISONE. [Concomitant]
     Active Substance: HYDROCORTISONE
  7. TRIAMCINOLONE [Concomitant]
     Active Substance: TRIAMCINOLONE
  8. TRAZODONE [Concomitant]
     Active Substance: TRAZODONE HYDROCHLORIDE
  9. LINZESS [Concomitant]
     Active Substance: LINACLOTIDE
  10. OXYCODONE [Concomitant]
     Active Substance: OXYCODONE
  11. RANITIDINE. [Concomitant]
     Active Substance: RANITIDINE
  12. OLANZAPINE. [Concomitant]
     Active Substance: OLANZAPINE
  13. HYDROXYZINE [Concomitant]
     Active Substance: HYDROXYZINE HYDROCHLORIDE
  14. MIRTAZAPINE. [Concomitant]
     Active Substance: MIRTAZAPINE

REACTIONS (4)
  - Nausea [Unknown]
  - Fatigue [Unknown]
  - Visual impairment [Unknown]
  - Ingrowing nail [Unknown]
